FAERS Safety Report 5074047-9 (Version None)
Quarter: 2006Q3

REPORT INFORMATION
  Report Type: 
  Country: None (occurrence: None)
  Receive Date: 20060808
  Receipt Date: 20050630
  Transmission Date: 20061208
  Serious: No
  Sender: FDA-Public Use
  Company Number: US-AMGEN-KDL141171

PATIENT
  Sex: Female

DRUGS (5)
  1. PROCRIT [Suspect]
     Indication: RENAL FAILURE CHRONIC
     Dates: start: 20050501
  2. ENALAPRIL MALEATE [Concomitant]
  3. DIOVAN [Concomitant]
  4. HYDROXYZINE [Concomitant]
  5. UNSPECIFIED MEDICATION [Concomitant]

REACTIONS (2)
  - ABDOMINAL PAIN [None]
  - NAUSEA [None]
